FAERS Safety Report 22736965 (Version 2)
Quarter: 2024Q1

REPORT INFORMATION
  Report Type: Spontaneous
  Country: US (occurrence: US)
  Receive Date: 20230721
  Receipt Date: 20240223
  Transmission Date: 20240410
  Serious: No
  Sender: FDA-Public Use
  Company Number: US-KARYOPHARM-2023KPT001576

PATIENT

DRUGS (8)
  1. XPOVIO [Suspect]
     Active Substance: SELINEXOR
     Indication: Brain neoplasm malignant
     Dosage: 80 MG, WEEKLY
     Route: 048
     Dates: start: 202307, end: 202309
  2. XPOVIO [Suspect]
     Active Substance: SELINEXOR
     Dosage: 80 MG, WEEKLY
     Route: 048
     Dates: start: 202309, end: 202310
  3. XPOVIO [Suspect]
     Active Substance: SELINEXOR
     Dosage: 60 MG, WEEKLY
     Route: 048
     Dates: start: 202310
  4. DEXAMETHASONE [Concomitant]
     Active Substance: DEXAMETHASONE
  5. KEPPRA [Concomitant]
     Active Substance: LEVETIRACETAM
  6. RITALIN [Concomitant]
     Active Substance: METHYLPHENIDATE HYDROCHLORIDE
  7. TEMOZOLOMIDE [Concomitant]
     Active Substance: TEMOZOLOMIDE
  8. ZOFRAN [Concomitant]
     Active Substance: ONDANSETRON HYDROCHLORIDE

REACTIONS (5)
  - Brain fog [Unknown]
  - Fatigue [Not Recovered/Not Resolved]
  - Platelet count decreased [Not Recovered/Not Resolved]
  - Constipation [Unknown]
  - Off label use [Unknown]

NARRATIVE: CASE EVENT DATE: 20230101
